FAERS Safety Report 9111184 (Version 1)
Quarter: 2013Q1

REPORT INFORMATION
  Report Type: Spontaneous
  Country: US (occurrence: US)
  Receive Date: 20130219
  Receipt Date: 20130219
  Transmission Date: 20140127
  Serious: No
  Sender: FDA-Public Use
  Company Number: US-BRISTOL-MYERS SQUIBB COMPANY-16923591

PATIENT
  Age: 44 Year
  Sex: Female
  Weight: 74.37 kg

DRUGS (3)
  1. ORENCIA [Suspect]
     Indication: RHEUMATOID ARTHRITIS
     Dosage: 1DF= EVERY 2 WEEKS X2 DOSING PERIODS AND THEN MONTHLY
     Route: 042
     Dates: start: 20120830
  2. IBUPROFEN [Concomitant]
  3. TRAMADOL [Concomitant]

REACTIONS (3)
  - Fatigue [Not Recovered/Not Resolved]
  - Feeling hot [Recovering/Resolving]
  - Rash [Recovering/Resolving]
